FAERS Safety Report 7038855-7 (Version None)
Quarter: 2010Q4

REPORT INFORMATION
  Report Type: 
  Country: None (occurrence: None)
  Receive Date: 20101012
  Receipt Date: 20100930
  Transmission Date: 20110411
  Serious: No
  Sender: FDA-Public Use
  Company Number: 2009BI034383

PATIENT
  Sex: Female

DRUGS (2)
  1. TYSABRI [Suspect]
     Indication: MULTIPLE SCLEROSIS
     Route: 042
     Dates: start: 20081113, end: 20100201
  2. TYSABRI [Suspect]
     Route: 042
     Dates: start: 20100401

REACTIONS (6)
  - ALLERGY TO ANIMAL [None]
  - CHEST PAIN [None]
  - COUGH [None]
  - DYSPNOEA [None]
  - PALPITATIONS [None]
  - UPPER RESPIRATORY TRACT INFECTION [None]
